FAERS Safety Report 6998840-8 (Version None)
Quarter: 2010Q3

REPORT INFORMATION
  Report Type: 
  Country: None (occurrence: None)
  Receive Date: 20100920
  Receipt Date: 20100113
  Transmission Date: 20110219
  Serious: Yes (Other)
  Sender: FDA-Public Use
  Company Number: US-ASTRAZENECA-2007UW09104

PATIENT
  Sex: Female

DRUGS (6)
  1. SEROQUEL [Suspect]
     Dosage: SEROQUEL 600 MG Q HS(TAPPERING DOSE OF 1200 MG TO 300 MG)AND TO DISCONTINUE AFTER 2 WEEKS.
     Route: 048
     Dates: start: 20031006
  2. ARTANE [Concomitant]
     Dosage: 2MG TO 4MG BID.
     Route: 048
     Dates: start: 20030101
  3. ZYPREXA [Concomitant]
     Route: 048
     Dates: start: 20030101
  4. LITHIUM CARBONATE [Concomitant]
     Dates: start: 20030101
  5. EFFEXOR XR [Concomitant]
     Dates: start: 20030101
  6. CLONAZEPAM [Concomitant]
     Dosage: 1 MG IN THE MORNING AND 4 MG AT BEDTIME.
     Dates: start: 20030101

REACTIONS (2)
  - DIABETES MELLITUS [None]
  - TARDIVE DYSKINESIA [None]
